FAERS Safety Report 10786515 (Version 1)
Quarter: 2015Q1

REPORT INFORMATION
  Report Type: Spontaneous
  Country: US (occurrence: US)
  Receive Date: 20150211
  Receipt Date: 20150211
  Transmission Date: 20150721
  Serious: No
  Sender: FDA-Public Use
  Company Number: US-GLAXOSMITHKLINE-A1075097A

PATIENT

DRUGS (3)
  1. STALEVO [Concomitant]
     Active Substance: CARBIDOPA\ENTACAPONE\LEVODOPA
  2. ROPINIROLE TABLETS [Suspect]
     Active Substance: ROPINIROLE
     Indication: PARKINSON^S DISEASE
     Dosage: PATIENT REPORTED SHE TAKES 2 MG THREE TIMES PER DAY AT MORNING, LUNCH AND EVENING, AND HER PHYS[...]
     Route: 048
  3. REQUIP [Suspect]
     Active Substance: ROPINIROLE HYDROCHLORIDE
     Indication: PARKINSON^S DISEASE
     Dosage: PATIENT REPORTED SHE TAKES 2 MG THREE TIMES PER DAY AT MORNING, LUNCH AND EVENING, AND HER PHYS[...]
     Route: 048

REACTIONS (4)
  - Therapeutic response decreased [Not Recovered/Not Resolved]
  - Osteoporosis [Unknown]
  - Gait disturbance [Not Recovered/Not Resolved]
  - Asthenia [Not Recovered/Not Resolved]
